FAERS Safety Report 6704134-8 (Version None)
Quarter: 2010Q2

REPORT INFORMATION
  Report Type: 
  Country: None (occurrence: None)
  Receive Date: 20100423
  Receipt Date: 20100225
  Transmission Date: 20101027
  Serious: No
  Sender: FDA-Public Use
  Company Number: ALL1-2010-00940

PATIENT
  Age: 38 Year
  Sex: Female

DRUGS (1)
  1. VYVANSE [Suspect]
     Indication: DRUG USE FOR UNKNOWN INDICATION
     Dosage: 50 MG, 1X/DAY;QD, ORAL
     Route: 048
     Dates: start: 20100202, end: 20100217

REACTIONS (2)
  - ADVERSE EVENT [None]
  - VOMITING PROJECTILE [None]
